FAERS Safety Report 8765164 (Version 2)
Quarter: 2012Q4

REPORT INFORMATION
  Report Type: 
  Country: US (occurrence: US)
  Receive Date: 20120903
  Receipt Date: 20121226
  Transmission Date: 20130627
  Serious: Yes (Hospitalization, Other)
  Sender: FDA-Public Use
  Company Number: US-SHIRE-ALL1-2012-04060

PATIENT
  Sex: Female
  Weight: 58.96 kg

DRUGS (3)
  1. FOSRENOL [Suspect]
     Indication: HYPERPHOSPHATAEMIA
     Dosage: 1000 mg, Unknown
     Route: 048
     Dates: start: 2012, end: 2012
  2. FOSRENOL [Suspect]
     Dosage: 3000 mg (three 1000 mg tablets), Unknown
     Route: 048
     Dates: start: 2012, end: 2012
  3. FOSRENOL [Suspect]
     Dosage: 2000 mg (two 1000 mg tablets), Unknown
     Route: 048
     Dates: start: 2012, end: 201208

REACTIONS (10)
  - Nerve compression [Unknown]
  - Dyspnoea [Unknown]
  - Sepsis [Unknown]
  - Hip fracture [Unknown]
  - Fall [Recovered/Resolved]
  - Feeling abnormal [Unknown]
  - Pyrexia [Unknown]
  - Dysphagia [Recovered/Resolved]
  - Diarrhoea [Recovered/Resolved]
  - Nausea [Recovering/Resolving]
